FAERS Safety Report 6844994-3 (Version None)
Quarter: 2010Q3

REPORT INFORMATION
  Report Type: 
  Country: None (occurrence: None)
  Receive Date: 20100715
  Receipt Date: 20100702
  Transmission Date: 20110219
  Serious: Yes (Other)
  Sender: FDA-Public Use
  Company Number: JP-GENENTECH-302087

PATIENT
  Sex: Male
  Weight: 71 kg

DRUGS (5)
  1. RANIBIZUMAB [Suspect]
     Indication: MACULAR DEGENERATION
     Dosage: 0.05 /ML, UNK
     Route: 031
     Dates: start: 20091109, end: 20100226
  2. VISUDYNE [Concomitant]
     Indication: PRODUCT USED FOR UNKNOWN INDICATION
     Dosage: UNK
     Dates: start: 20050701, end: 20070201
  3. GATIFLOXACIN [Concomitant]
     Indication: PRODUCT USED FOR UNKNOWN INDICATION
     Dosage: UNK
     Dates: start: 20091101, end: 20100201
  4. ADONA [Concomitant]
     Indication: MACULAR DEGENERATION
     Dosage: UNK
     Dates: start: 20050717
  5. KALLIDINOGENASE [Concomitant]
     Indication: MACULAR DEGENERATION
     Dosage: UNK
     Dates: start: 20050712

REACTIONS (2)
  - DIZZINESS [None]
  - VERTIGO POSITIONAL [None]
